FAERS Safety Report 5603386-5 (Version None)
Quarter: 2008Q1

REPORT INFORMATION
  Report Type: 
  Country: None (occurrence: None)
  Receive Date: 20080123
  Receipt Date: 20080107
  Transmission Date: 20080703
  Serious: Yes (Other)
  Sender: FDA-Public Use
  Company Number: 8029048

PATIENT
  Age: 49 Year
  Sex: Female

DRUGS (2)
  1. KEPPRA [Suspect]
     Indication: EPILEPSY
     Dosage: 250 MG /D PO
     Route: 048
     Dates: start: 20071201, end: 20080102
  2. DEPAKENE [Concomitant]

REACTIONS (3)
  - LEUKOPENIA [None]
  - PLATELET COUNT DECREASED [None]
  - PLATELET DISORDER [None]
